FAERS Safety Report 15775561 (Version 1)
Quarter: 2018Q4

REPORT INFORMATION
  Report Type: Spontaneous
  Country: FR (occurrence: FR)
  Receive Date: 20181231
  Receipt Date: 20181231
  Transmission Date: 20190205
  Serious: Yes (Hospitalization)
  Sender: FDA-Public Use
  Company Number: FR-SUN PHARMACEUTICAL INDUSTRIES LTD-2018RR-195047

PATIENT
  Age: 60 Year
  Sex: Female
  Weight: 86 kg

DRUGS (2)
  1. FLECAINE L.P. 100 MG, GELULE A LIBERATION PROLONGEE [Suspect]
     Active Substance: FLECAINIDE ACETATE
     Indication: POISONING DELIBERATE
     Dosage: ()
     Route: 048
     Dates: start: 20180716
  2. AMLODIPINE [Suspect]
     Active Substance: AMLODIPINE BESYLATE
     Indication: POISONING DELIBERATE
     Dosage: ()
     Route: 048
     Dates: start: 20180716

REACTIONS (2)
  - Altered state of consciousness [Recovered/Resolved]
  - Bifascicular block [Recovered/Resolved]

NARRATIVE: CASE EVENT DATE: 20180716
